FAERS Safety Report 9933508 (Version 2)
Quarter: 2014Q1

REPORT INFORMATION
  Report Type: Spontaneous
  Country: US (occurrence: US)
  Receive Date: 20140228
  Receipt Date: 20140228
  Transmission Date: 20141002
  Serious: No
  Sender: FDA-Public Use
  Company Number: US-MYLANLABS-2013S1021898

PATIENT
  Sex: Male

DRUGS (1)
  1. AMNESTEEM CAPSULES [Suspect]
     Route: 048
     Dates: start: 20130819, end: 20130919

REACTIONS (3)
  - Drug dispensing error [Recovered/Resolved]
  - Incorrect dose administered [Recovered/Resolved]
  - No adverse event [Recovered/Resolved]
